FAERS Safety Report 18224107 (Version 1)
Quarter: 2020Q3

REPORT INFORMATION
  Report Type: Spontaneous
  Country: US (occurrence: US)
  Receive Date: 20200902
  Receipt Date: 20200902
  Transmission Date: 20201103
  Serious: Yes (Hospitalization, Other)
  Sender: FDA-Public Use
  Company Number: US-SA-2020SA230853

PATIENT

DRUGS (28)
  1. TREPROSTINIL SODIUM [Suspect]
     Active Substance: TREPROSTINIL SODIUM
     Dosage: 24 UG, QID
     Route: 055
  2. TADALAFIL. [Concomitant]
     Active Substance: TADALAFIL
  3. KEPPRA [Concomitant]
     Active Substance: LEVETIRACETAM
  4. DEXAMETHASONE. [Concomitant]
     Active Substance: DEXAMETHASONE
  5. ACETYLSALICYLIC ACID [Suspect]
     Active Substance: ASPIRIN
     Indication: PRODUCT USED FOR UNKNOWN INDICATION
     Dosage: 81 MG, QD
     Route: 048
  6. OPSUMIT [Concomitant]
     Active Substance: MACITENTAN
  7. MIRALAX [Concomitant]
     Active Substance: POLYETHYLENE GLYCOL 3350
     Indication: CONSTIPATION
  8. CETIRIZINE [Concomitant]
     Active Substance: CETIRIZINE HYDROCHLORIDE
  9. FLOVENT HFA [Concomitant]
     Active Substance: FLUTICASONE PROPIONATE
  10. FERROUS SULFATE. [Concomitant]
     Active Substance: FERROUS SULFATE
  11. CIALIS [Concomitant]
     Active Substance: TADALAFIL
  12. TREPROSTINIL SODIUM [Suspect]
     Active Substance: TREPROSTINIL SODIUM
     Indication: PULMONARY ARTERIAL HYPERTENSION
     Dosage: UNK UNK, QID
     Route: 055
     Dates: start: 20160516
  13. ARTIFICIAL TEARS [Concomitant]
     Active Substance: GLYCERIN\HYPROMELLOSES\POLYETHYLENE GLYCOL 400
  14. NORMAL SALINE [Concomitant]
     Active Substance: SODIUM CHLORIDE
     Dosage: UNK
  15. ILOPROST. [Concomitant]
     Active Substance: ILOPROST
  16. OXYGEN. [Concomitant]
     Active Substance: OXYGEN
     Dosage: UNK
     Route: 045
  17. LEVOTHYROXINE. [Concomitant]
     Active Substance: LEVOTHYROXINE
  18. NORMAL SALINE [Concomitant]
     Active Substance: SODIUM CHLORIDE
  19. MONTELUKAST [Concomitant]
     Active Substance: MONTELUKAST SODIUM
  20. DIASTAT ACUDIAL [Concomitant]
     Active Substance: DIAZEPAM
  21. LOVENOX [Suspect]
     Active Substance: ENOXAPARIN SODIUM
     Indication: PRODUCT USED FOR UNKNOWN INDICATION
     Dosage: 40 MG, QD
     Route: 058
  22. TREPROSTINIL SODIUM [Suspect]
     Active Substance: TREPROSTINIL SODIUM
     Dosage: UNK UNK, QID,18?54 ?G
     Route: 055
  23. ATIVAN [Concomitant]
     Active Substance: LORAZEPAM
  24. BENADRYL [Concomitant]
     Active Substance: DIPHENHYDRAMINE HYDROCHLORIDE
  25. PREVACID [Concomitant]
     Active Substance: LANSOPRAZOLE
  26. TYLENOL [Concomitant]
     Active Substance: ACETAMINOPHEN
  27. OCULAR LUBRICANT [HYPROMELLOSE] [Concomitant]
  28. PULMICORT TURBUHALER [Concomitant]
     Active Substance: BUDESONIDE

REACTIONS (10)
  - Pyrexia [Unknown]
  - Treatment noncompliance [Unknown]
  - COVID-19 pneumonia [Recovered/Resolved]
  - Pulmonary hypertension [Unknown]
  - Respiratory failure [Unknown]
  - Bicytopenia [Recovered/Resolved]
  - Constipation [Unknown]
  - Superinfection bacterial [Unknown]
  - Thrombocytopenia [Recovered/Resolved]
  - Brain natriuretic peptide decreased [Unknown]

NARRATIVE: CASE EVENT DATE: 202008
